FAERS Safety Report 6820883-5 (Version None)
Quarter: 2010Q3

REPORT INFORMATION
  Report Type: 
  Country: None (occurrence: None)
  Receive Date: 20100707
  Receipt Date: 20080125
  Transmission Date: 20110219
  Serious: Yes (Other)
  Sender: FDA-Public Use
  Company Number: US-PFIZER INC-2007046904

PATIENT
  Sex: Female

DRUGS (5)
  1. SERTRALINE [Suspect]
     Indication: MAJOR DEPRESSION
     Dates: start: 20060901
  2. SERTRALINE [Suspect]
  3. ZOLOFT [Concomitant]
     Indication: MAJOR DEPRESSION
  4. WELLBUTRIN [Concomitant]
  5. KLONOPIN [Concomitant]

REACTIONS (3)
  - DEPRESSION [None]
  - SUICIDAL IDEATION [None]
  - WEIGHT DECREASED [None]
